FAERS Safety Report 7976136-5 (Version None)
Quarter: 2011Q4

REPORT INFORMATION
  Report Type: 
  Country: None (occurrence: None)
  Receive Date: 20111213
  Receipt Date: 20111012
  Transmission Date: 20120403
  Serious: No
  Sender: FDA-Public Use
  Company Number: US-AMGEN-USASP2011052758

PATIENT
  Age: 75 Year
  Sex: Female

DRUGS (7)
  1. NAPROXEN [Concomitant]
     Dosage: 2 MG, QD
  2. LEVSIN/SL [Concomitant]
     Dosage: UNK
  3. ENBREL [Suspect]
     Indication: RHEUMATOID ARTHRITIS
     Dosage: 50 MG, QWK
     Dates: start: 20000101
  4. PANTOPRAZOLE [Concomitant]
     Dosage: 1 MG, QD
  5. PREDNISONE TAB [Concomitant]
     Dosage: 1 UNK, QD
  6. TRAMADOL HCL [Concomitant]
     Dosage: 3 MG, QD
  7. SYNTHROID [Concomitant]
     Dosage: 1 MG, QD

REACTIONS (4)
  - INJECTION SITE PAIN [None]
  - COELIAC DISEASE [None]
  - INFECTION [None]
  - HERPES ZOSTER [None]
